FAERS Safety Report 15524083 (Version 1)
Quarter: 2018Q4

REPORT INFORMATION
  Report Type: Spontaneous
  Country: ES (occurrence: ES)
  Receive Date: 20181019
  Receipt Date: 20181019
  Transmission Date: 20190205
  Serious: Yes (Other)
  Sender: FDA-Public Use
  Company Number: ES-JNJFOC-20181027854

PATIENT
  Age: 55 Year
  Sex: Male

DRUGS (1)
  1. USTEKINUMAB [Suspect]
     Active Substance: USTEKINUMAB
     Indication: PSORIASIS
     Route: 058
     Dates: start: 20171018

REACTIONS (2)
  - Papillary renal cell carcinoma [Unknown]
  - Renal mass [Unknown]

NARRATIVE: CASE EVENT DATE: 20181005
